FAERS Safety Report 15051215 (Version 1)
Quarter: 2018Q2

REPORT INFORMATION
  Report Type: Spontaneous
  Country: BR (occurrence: BR)
  Receive Date: 20180622
  Receipt Date: 20180622
  Transmission Date: 20180711
  Serious: Yes (Other)
  Sender: FDA-Public Use
  Company Number: BR-SHIRE-BR201817350

PATIENT

DRUGS (1)
  1. VENVANSE [Suspect]
     Active Substance: LISDEXAMFETAMINE DIMESYLATE
     Indication: ATTENTION DEFICIT/HYPERACTIVITY DISORDER
     Dosage: 50 MG, AS REQ^D
     Route: 048

REACTIONS (12)
  - Drug effect decreased [Unknown]
  - Defaecation urgency [Unknown]
  - Product physical issue [Unknown]
  - Dysgeusia [Unknown]
  - Dry mouth [Unknown]
  - Hyperhidrosis [Unknown]
  - Arrhythmia [Unknown]
  - Insomnia [Unknown]
  - Fatigue [Unknown]
  - Micturition urgency [Unknown]
  - Decreased appetite [Unknown]
  - Product physical consistency issue [Unknown]

NARRATIVE: CASE EVENT DATE: 201803
